FAERS Safety Report 7004214-6 (Version None)
Quarter: 2010Q3

REPORT INFORMATION
  Report Type: 
  Country: None (occurrence: None)
  Receive Date: 20100920
  Receipt Date: 20100211
  Transmission Date: 20110219
  Serious: No
  Sender: FDA-Public Use
  Company Number: US-WYE-H13637110

PATIENT
  Age: 67 Year
  Sex: Female

DRUGS (9)
  1. PRISTIQ [Suspect]
     Indication: DEPRESSION
     Route: 048
     Dates: start: 20090401
  2. LANTUS [Concomitant]
  3. LEVOTHYROXINE SODIUM [Concomitant]
  4. PROPRANOLOL [Concomitant]
  5. DIOVAN [Concomitant]
  6. ABILIFY [Concomitant]
  7. LAMOTRIGINE [Concomitant]
  8. HUMALOG [Concomitant]
  9. LIPITOR [Concomitant]

REACTIONS (2)
  - BLOOD CHOLESTEROL INCREASED [None]
  - BLOOD PRESSURE INCREASED [None]
